FAERS Safety Report 8773003 (Version 1)
Quarter: 2012Q4

REPORT INFORMATION
  Report Type: 
  Country: US (occurrence: US)
  Receive Date: 20120907
  Receipt Date: 20120907
  Transmission Date: 20130627
  Serious: Yes (Other)
  Sender: FDA-Public Use
  Company Number: US-PFIZER INC-2012220048

PATIENT
  Age: 21 Year
  Sex: Male

DRUGS (3)
  1. GEODON [Suspect]
     Dosage: 80 mg, every night
  2. ZYPREXA [Suspect]
     Dosage: UNK
  3. DEPAKOTE [Suspect]
     Dosage: 500 mg, UNK

REACTIONS (6)
  - Psychomotor hyperactivity [Unknown]
  - Gait disturbance [Unknown]
  - Bradyphrenia [Unknown]
  - Staring [Unknown]
  - Insomnia [Unknown]
  - Poor quality sleep [Unknown]
